FAERS Safety Report 14873476 (Version 1)
Quarter: 2018Q2

REPORT INFORMATION
  Report Type: Spontaneous
  Country: US (occurrence: US)
  Receive Date: 20180424
  Receipt Date: 20180424
  Transmission Date: 20180711
  Serious: Yes (Death)
  Sender: FDA-Public Use
  Company Number: None

PATIENT
  Age: 20 Year
  Sex: Male

DRUGS (9)
  1. MILRINONE LACTATE. [Concomitant]
     Active Substance: MILRINONE LACTATE
  2. EMLA [Concomitant]
     Active Substance: LIDOCAINE\PRILOCAINE
  3. HURRICAINE [Concomitant]
     Active Substance: BENZOCAINE
  4. LASIX [Concomitant]
     Active Substance: FUROSEMIDE
  5. EHTYL CHLORIDE [Concomitant]
  6. ZOFRAN [Concomitant]
     Active Substance: ONDANSETRON HYDROCHLORIDE
  7. LIDOCAINE HCL JELLY [Concomitant]
  8. ADCIRCA [Suspect]
     Active Substance: TADALAFIL
     Indication: PULMONARY HYPERTENSION
     Route: 048
  9. TYLENOL ATRHARITIS PAIN [Concomitant]

REACTIONS (1)
  - Death [None]

NARRATIVE: CASE EVENT DATE: 20180423
